FAERS Safety Report 8965611 (Version 1)
Quarter: 2012Q4

REPORT INFORMATION
  Report Type: 
  Country: US (occurrence: None)
  Receive Date: 20121212
  Receipt Date: 20121212
  Transmission Date: 20130627
  Serious: Yes (Hospitalization)
  Sender: FDA-Public Use
  Company Number: None

PATIENT
  Sex: Male
  Weight: 76 kg

DRUGS (1)
  1. CISPLATIN [Suspect]

REACTIONS (4)
  - Hot flush [None]
  - Loss of consciousness [None]
  - Blood potassium decreased [None]
  - Renal failure [None]
